FAERS Safety Report 8166501-8 (Version None)
Quarter: 2012Q1

REPORT INFORMATION
  Report Type: 
  Country: None (occurrence: None)
  Receive Date: 20120227
  Receipt Date: 20111004
  Transmission Date: 20120608
  Serious: No
  Sender: FDA-Public Use
  Company Number: JP-MYLANLABS-2011S1020084

PATIENT
  Age: 19 Year
  Sex: Female

DRUGS (2)
  1. AMNESTEEM [Suspect]
     Dates: start: 20101027
  2. AMNESTEEM [Suspect]

REACTIONS (1)
  - PREGNANCY TEST FALSE POSITIVE [None]
